FAERS Safety Report 7230397-9 (Version None)
Quarter: 2011Q1

REPORT INFORMATION
  Report Type: 
  Country: None (occurrence: None)
  Receive Date: 20110118
  Receipt Date: 20110107
  Transmission Date: 20110831
  Serious: Yes (Hospitalization, Other)
  Sender: FDA-Public Use
  Company Number: CA-ELI_LILLY_AND_COMPANY-CA201101002198

PATIENT
  Age: 79 Year
  Sex: Female

DRUGS (15)
  1. SYNTHROID [Concomitant]
  2. COLACE [Concomitant]
  3. ATASOL /00020001/ [Concomitant]
  4. NEXIUM [Concomitant]
  5. PLAVIX [Concomitant]
  6. D-TABS [Concomitant]
  7. METAMUCIL-2 [Concomitant]
  8. FORTEO [Suspect]
     Indication: OSTEOPOROSIS
     Dosage: 20 UG, DAILY (1/D)
  9. ASPIRIN [Concomitant]
  10. BISOPROLOL [Concomitant]
  11. COUMADIN [Concomitant]
  12. LIPITOR [Concomitant]
  13. PLAQUENIL [Concomitant]
  14. RAMIPRIL [Concomitant]
  15. CALCIUM [Concomitant]

REACTIONS (2)
  - CHEST PAIN [None]
  - ACUTE MYOCARDIAL INFARCTION [None]
